FAERS Safety Report 15839585 (Version 2)
Quarter: 2019Q1

REPORT INFORMATION
  Report Type: Report from Study
  Country: AU (occurrence: AU)
  Receive Date: 20190117
  Receipt Date: 20190131
  Transmission Date: 20190417
  Serious: Yes (Hospitalization)
  Sender: FDA-Public Use
  Company Number: AU-TEVA-2019-AU-997707

PATIENT

DRUGS (2)
  1. ATORVASTATIN CALCIUM. [Suspect]
     Active Substance: ATORVASTATIN CALCIUM
     Route: 065
  2. FENOFIBRATE. [Interacting]
     Active Substance: FENOFIBRATE
     Route: 065

REACTIONS (2)
  - Toxicity to various agents [Unknown]
  - Drug interaction [Unknown]
